FAERS Safety Report 11556042 (Version 1)
Quarter: 2015Q3

REPORT INFORMATION
  Report Type: Spontaneous
  Country: FR (occurrence: FR)
  Receive Date: 20150925
  Receipt Date: 20150925
  Transmission Date: 20151125
  Serious: Yes (Hospitalization)
  Sender: FDA-Public Use
  Company Number: FR-009507513-1509FRA011445

PATIENT
  Age: 71 Year
  Sex: Male

DRUGS (2)
  1. PREVISCAN [Suspect]
     Active Substance: FLUINDIONE
     Indication: PROPHYLAXIS
     Dosage: 0.5 SCORED TABLET, QD
     Route: 048
     Dates: end: 20150803
  2. INEGY [Interacting]
     Active Substance: EZETIMIBE\SIMVASTATIN
     Indication: DYSLIPIDAEMIA
     Dosage: 1 TABLET, QD
     Route: 048

REACTIONS (1)
  - Peritoneal haematoma [Recovered/Resolved]

NARRATIVE: CASE EVENT DATE: 20150804
